FAERS Safety Report 15762542 (Version 1)
Quarter: 2018Q4

REPORT INFORMATION
  Report Type: Spontaneous
  Country: FR (occurrence: FR)
  Receive Date: 20181226
  Receipt Date: 20181226
  Transmission Date: 20190205
  Serious: Yes (Death)
  Sender: FDA-Public Use
  Company Number: FR-PFIZER INC-2018521787

PATIENT
  Sex: Female

DRUGS (1)
  1. SUTENT [Suspect]
     Active Substance: SUNITINIB MALATE
     Indication: LYMPHANGIOSIS CARCINOMATOSA
     Dosage: 37.5 MG, 1X/DAY
     Route: 048
     Dates: start: 2013, end: 20181122

REACTIONS (4)
  - Cardiac failure acute [Fatal]
  - Renal failure [Fatal]
  - Product use in unapproved indication [Unknown]
  - Hepatic failure [Fatal]

NARRATIVE: CASE EVENT DATE: 201708
